FAERS Safety Report 8515305-2 (Version None)
Quarter: 2012Q3

REPORT INFORMATION
  Report Type: 
  Country: None (occurrence: None)
  Receive Date: 20120705
  Receipt Date: 20120619
  Transmission Date: 20120928
  Serious: Yes (Hospitalization, Other)
  Sender: FDA-Public Use
  Company Number: CIP11000516

PATIENT
  Age: 57 Year
  Sex: Female
  Weight: 68 kg

DRUGS (17)
  1. PANTOPRAZOLE SODIUM (PANTOPRAZOLE SODIUM SESQUIHYDRATE) [Concomitant]
  2. CLARINEX /01202601/ (LORATADINE, PSEUDOEPHEDRINE SULFATE) [Concomitant]
  3. HUMIRA [Concomitant]
  4. PREDNISONE TAB [Concomitant]
  5. METHOTREXATE SODIUM [Concomitant]
  6. NABUMETONE [Concomitant]
  7. VITAMIN D [Concomitant]
  8. CALCIUM CARBONATE [Concomitant]
  9. VALTREX [Concomitant]
  10. ASPIRIN [Concomitant]
  11. FOLIC ACID [Concomitant]
  12. FERROUS SULFATE TAB [Concomitant]
  13. ACTONEL [Suspect]
     Indication: OSTEOPENIA
     Dosage: 150 MG ONCE MONTHLY, ORAL
     Route: 048
     Dates: start: 20090501, end: 20100122
  14. LEVOTHYROXINE SODIUM [Concomitant]
  15. LISINOPRIL [Concomitant]
  16. DYAZIDE [Concomitant]
  17. NASONEX [Concomitant]

REACTIONS (12)
  - OSTEOARTHRITIS [None]
  - FEMUR FRACTURE [None]
  - FRACTURE DISPLACEMENT [None]
  - FALL [None]
  - RENAL FAILURE CHRONIC [None]
  - NEPHROSCLEROSIS [None]
  - ANAEMIA [None]
  - PAIN IN EXTREMITY [None]
  - URINARY TRACT INFECTION [None]
  - STRESS FRACTURE [None]
  - FRACTURE DELAYED UNION [None]
  - HYPERCALCAEMIA [None]
